FAERS Safety Report 8286280-3 (Version None)
Quarter: 2012Q1

REPORT INFORMATION
  Report Type: 
  Country: None (occurrence: None)
  Receive Date: 20120314
  Receipt Date: 20100913
  Transmission Date: 20120608
  Serious: No
  Sender: FDA-Public Use
  Company Number: PHHY2010US55086

PATIENT
  Age: 45 Year
  Sex: Male

DRUGS (1)
  1. FANAPT [Suspect]
     Indication: SCHIZOPHRENIA
     Dosage: UNK, ORAL
     Route: 048
     Dates: start: 20100601

REACTIONS (2)
  - INSOMNIA [None]
  - SCHIZOPHRENIA [None]
